FAERS Safety Report 10911832 (Version 1)
Quarter: 2015Q1

REPORT INFORMATION
  Report Type: Spontaneous
  Country: US (occurrence: None)
  Receive Date: 20150128
  Receipt Date: 20150128
  Transmission Date: 20150721
  Serious: No
  Sender: FDA-Public Use
  Company Number: 2014TUS011345

PATIENT
  Age: 59 Year
  Sex: Female
  Weight: 70.3 kg

DRUGS (24)
  1. FOSAMAX [Concomitant]
     Active Substance: ALENDRONATE SODIUM
  2. SPIRONOLACTONE. [Concomitant]
     Active Substance: SPIRONOLACTONE
  3. PROAIR HFA CFC FREE (SALBUTAMOL SULFATE) [Concomitant]
  4. AMBIEN [Concomitant]
     Active Substance: ZOLPIDEM TARTRATE
  5. LASIX [Concomitant]
     Active Substance: FUROSEMIDE
  6. XANAX [Concomitant]
     Active Substance: ALPRAZOLAM
  7. BRINTELLIX [Suspect]
     Active Substance: VORTIOXETINE HYDROBROMIDE
     Indication: MAJOR DEPRESSION
     Route: 048
     Dates: start: 20141029, end: 20141030
  8. BRINTELLIX [Suspect]
     Active Substance: VORTIOXETINE HYDROBROMIDE
     Indication: ANXIETY
     Route: 048
     Dates: start: 20141029, end: 20141030
  9. ATENOLOL. [Concomitant]
     Active Substance: ATENOLOL
  10. TEGRETOL [Concomitant]
     Active Substance: CARBAMAZEPINE
  11. LACTULOSE. [Concomitant]
     Active Substance: LACTULOSE
  12. ADVAIR DISKUS (FLUTICASONE PROPIONATE, SALMETEROL XINAFOATE) [Concomitant]
  13. CYMBALTA [Concomitant]
     Active Substance: DULOXETINE HYDROCHLORIDE
  14. SINGULAIR (MONTELUKAST SODIUM) [Concomitant]
  15. LEVOTHYROXINE [Concomitant]
     Active Substance: LEVOTHYROXINE
  16. VITAMIN B12 [Concomitant]
     Active Substance: CYANOCOBALAMIN
  17. BUSPIRONE [Concomitant]
     Active Substance: BUSPIRONE HYDROCHLORIDE
  18. AMITIZA [Concomitant]
     Active Substance: LUBIPROSTONE
  19. CELEBREX [Concomitant]
     Active Substance: CELECOXIB
  20. VOLTAREN (DICLOFENAC) [Concomitant]
  21. POTASSIUM CHLORIDE. [Concomitant]
     Active Substance: POTASSIUM CHLORIDE
  22. KLOR-CON M10 (POTASSIUM CHLORIDE) [Concomitant]
  23. PROTONIX [Concomitant]
     Active Substance: PANTOPRAZOLE SODIUM
  24. ALBUTEROL CFC FREE (SALBUTAMOL) [Concomitant]

REACTIONS (4)
  - Agitation [None]
  - Tremor [None]
  - Feeling hot [None]
  - Flushing [None]

NARRATIVE: CASE EVENT DATE: 20141029
